FAERS Safety Report 16865747 (Version 1)
Quarter: 2019Q3

REPORT INFORMATION
  Report Type: Spontaneous
  Country: US (occurrence: US)
  Receive Date: 20190930
  Receipt Date: 20190930
  Transmission Date: 20191005
  Serious: Yes (Other)
  Sender: FDA-Public Use
  Company Number: US-TEVA-2019-US-1115566

PATIENT
  Age: 28 Year
  Sex: Female

DRUGS (3)
  1. LOTEPREDNOL-ETABONATE [Suspect]
     Active Substance: LOTEPREDNOL ETABONATE
     Indication: UVEITIS
     Dosage: BID
     Route: 031
  2. TRIAMCINOLONE [Suspect]
     Active Substance: TRIAMCINOLONE
     Indication: UVEITIS
     Dosage: IN THE RIGHT EYE (SUB-TENON INJECTION).
     Route: 031
  3. PREDNISOLONE ACETATE. [Suspect]
     Active Substance: PREDNISOLONE ACETATE
     Indication: UVEITIS
     Dosage: 1 % OPHTHALMIC SUSPENSION
     Route: 047

REACTIONS (2)
  - Intraocular pressure increased [Recovered/Resolved]
  - Cataract subcapsular [Recovered/Resolved]
